FAERS Safety Report 8788712 (Version 1)
Quarter: 2012Q4

REPORT INFORMATION
  Report Type: 
  Country: BR (occurrence: BR)
  Receive Date: 20120917
  Receipt Date: 20120917
  Transmission Date: 20130627
  Serious: Yes (Other)
  Sender: FDA-Public Use
  Company Number: BR-AMGEN-BRASP2012045270

PATIENT
  Age: 36 Year
  Sex: Female
  Weight: 83 kg

DRUGS (9)
  1. ENBREL [Suspect]
     Indication: PSORIATIC ARTHROPATHY
     Dosage: 50 mg, once weekly
     Route: 058
     Dates: start: 20100511, end: 201206
  2. ENBREL [Suspect]
     Dosage: 50 mg, weekly
     Route: 058
     Dates: start: 201207
  3. METHOTREXATE [Concomitant]
     Dosage: 4 times a week
     Dates: start: 2010
  4. TRILEPTAL [Concomitant]
     Dosage: 300 mg, 1x/day (at night)
     Dates: start: 2009
  5. ZETRON                             /00700502/ [Concomitant]
     Dosage: one daily (in the morning)
     Dates: start: 2007
  6. DAFORIN [Concomitant]
     Dosage: once daily (in the morning)
     Dates: start: 2010
  7. FOSTAIR [Concomitant]
     Dosage: twice daily (in the morning and at night)
     Dates: start: 2011
  8. VICTOZA [Concomitant]
     Dosage: once daily (in the morning)
     Dates: start: 201204
  9. FOLIN                              /00024201/ [Concomitant]
     Dosage: twice weekly
     Dates: start: 2010

REACTIONS (4)
  - Nephrolithiasis [Recovering/Resolving]
  - Bartholin^s cyst [Recovering/Resolving]
  - Stress [Unknown]
  - Psoriasis [Unknown]
